FAERS Safety Report 4717333-1 (Version None)
Quarter: 2005Q3

REPORT INFORMATION
  Report Type: 
  Country: None (occurrence: None)
  Receive Date: 20050715
  Receipt Date: 20050629
  Transmission Date: 20060218
  Serious: Yes (Hospitalization)
  Sender: FDA-Public Use
  Company Number: CTI_0815_2005

PATIENT
  Age: 80 Year
  Sex: Male
  Weight: 59.09 kg

DRUGS (16)
  1. ZILEUTON [Suspect]
     Indication: NON-SMALL CELL LUNG CANCER
     Dosage: 600 MG QID PO
     Route: 048
     Dates: start: 20040813, end: 20040824
  2. CARBOPLATIN [Suspect]
     Indication: NON-SMALL CELL LUNG CANCER
     Dosage: 352 MG ONCE IV
     Route: 042
     Dates: start: 20040813, end: 20040813
  3. GEMCITABINE [Suspect]
     Indication: NON-SMALL CELL LUNG CANCER
     Dosage: 1630 MG QWK IV
     Route: 042
     Dates: start: 20040813, end: 20040820
  4. ALBUTEROL SULFATE AND IPRATROPIUM BROMIDE [Concomitant]
  5. ATENOLOL [Concomitant]
  6. DILTIAZEM [Concomitant]
  7. FOSINOPRIL NA [Concomitant]
  8. ISOSORBIDE DINITRATE [Concomitant]
  9. MORPHINE [Concomitant]
  10. NIACIN [Concomitant]
  11. NITROGLYCERIN ^A.L.^ [Concomitant]
  12. OMEPRAZOLE [Concomitant]
  13. PROCHLORPERAZINE [Concomitant]
  14. SERTRALINE HYDROCHLORIDE [Concomitant]
  15. SIMVASTATIN [Concomitant]
  16. TEMAZEPAM [Concomitant]

REACTIONS (14)
  - BLOOD ALBUMIN DECREASED [None]
  - BLOOD SODIUM DECREASED [None]
  - BLOOD UREA INCREASED [None]
  - CHILLS [None]
  - DEHYDRATION [None]
  - DIARRHOEA [None]
  - DIZZINESS [None]
  - DRUG HYPERSENSITIVITY [None]
  - HAEMATOCRIT DECREASED [None]
  - NAUSEA [None]
  - NEUTROPHIL COUNT DECREASED [None]
  - PLATELET COUNT DECREASED [None]
  - PRURITUS [None]
  - VOMITING [None]
